FAERS Safety Report 9490478 (Version 1)
Quarter: 2013Q3

REPORT INFORMATION
  Report Type: Spontaneous
  Country: AU (occurrence: AU)
  Receive Date: 20130830
  Receipt Date: 20130830
  Transmission Date: 20140515
  Serious: Yes (Other)
  Sender: FDA-Public Use
  Company Number: AU-RANBAXY-2013RR-72410

PATIENT
  Age: 45 Year
  Sex: Male

DRUGS (2)
  1. RISPERIDONE [Suspect]
     Indication: SCHIZOPHRENIA
     Dosage: 2 MG, QD, AT NIGHT
     Route: 048
  2. PALIPERIDONE [Interacting]
     Indication: SCHIZOPHRENIA
     Dosage: 100 MG, MONTHLY, DEPOT INJECTION
     Route: 065

REACTIONS (3)
  - Neutropenia [Recovering/Resolving]
  - Lymphopenia [Recovering/Resolving]
  - Drug interaction [Recovering/Resolving]
